FAERS Safety Report 14981794 (Version 2)
Quarter: 2018Q2

REPORT INFORMATION
  Report Type: Spontaneous
  Country: JP (occurrence: JP)
  Receive Date: 20180607
  Receipt Date: 20180615
  Transmission Date: 20180711
  Serious: Yes (Other)
  Sender: FDA-Public Use
  Company Number: JP-ASTELLAS-2018JP010210

PATIENT
  Age: 33 Year
  Sex: Female
  Weight: 42 kg

DRUGS (7)
  1. PROGRAF [Suspect]
     Active Substance: TACROLIMUS\TACROLIMUS ANHYDROUS
     Indication: LUPUS NEPHRITIS
     Dosage: DOSE BEING INCREASED AND REDUCED BETWEEN 3 MG AND 1 MG, ONCE DAILY
     Route: 048
     Dates: start: 20141107, end: 2017
  2. GASTER [Suspect]
     Active Substance: FAMOTIDINE
     Route: 048
     Dates: start: 20170530, end: 2017
  3. GASTER [Suspect]
     Active Substance: FAMOTIDINE
     Indication: PROPHYLAXIS AGAINST GASTROINTESTINAL ULCER
     Route: 048
     Dates: start: 20110729
  4. PROGRAF [Suspect]
     Active Substance: TACROLIMUS\TACROLIMUS ANHYDROUS
     Indication: SYSTEMIC LUPUS ERYTHEMATOSUS
     Route: 048
  5. GASTER [Suspect]
     Active Substance: FAMOTIDINE
     Route: 048
     Dates: end: 20170529
  6. PREDNISOLONE. [Concomitant]
     Active Substance: PREDNISOLONE
     Indication: PRODUCT USED FOR UNKNOWN INDICATION
     Route: 048
  7. GASTER [Suspect]
     Active Substance: FAMOTIDINE
     Route: 048

REACTIONS (3)
  - Hypertension [Not Recovered/Not Resolved]
  - Abortion spontaneous complete [Recovered/Resolved]
  - Maternal exposure during pregnancy [Unknown]

NARRATIVE: CASE EVENT DATE: 2016
